FAERS Safety Report 5501889-5 (Version None)
Quarter: 2007Q4

REPORT INFORMATION
  Report Type: 
  Country: None (occurrence: None)
  Receive Date: 20071030
  Receipt Date: 20071022
  Transmission Date: 20080405
  Serious: Yes (Other)
  Sender: FDA-Public Use
  Company Number: US-KINGPHARMUSA00001-K200701378

PATIENT

DRUGS (5)
  1. SKELAXIN [Suspect]
  2. ROBAXIN [Suspect]
  3. OXYCODONE HCL [Suspect]
  4. ALCOHOL                            /00002101/ [Suspect]
  5. FENTANYL CITRATE [Suspect]
     Dosage: 75 UG/HR
     Route: 062

REACTIONS (4)
  - ABASIA [None]
  - ALCOHOL INTERACTION [None]
  - OVERDOSE [None]
  - SPEECH DISORDER [None]
